FAERS Safety Report 6129598-2 (Version None)
Quarter: 2009Q1

REPORT INFORMATION
  Report Type: 
  Country: None (occurrence: None)
  Receive Date: 20090323
  Receipt Date: 20090323
  Transmission Date: 20090719
  Serious: Yes (Other)
  Sender: FDA-Public Use
  Company Number: None

PATIENT
  Age: 38 Year
  Sex: Female
  Weight: 114.3065 kg

DRUGS (5)
  1. INAPSINE [Suspect]
     Indication: ABDOMINAL PAIN
     Dosage: UNKNOWN ONCE IV
     Route: 042
     Dates: start: 20090319, end: 20090319
  2. INAPSINE [Suspect]
     Indication: NAUSEA
     Dosage: UNKNOWN ONCE IV
     Route: 042
     Dates: start: 20090319, end: 20090319
  3. DILAUDID [Concomitant]
  4. BENADRYL [Concomitant]
  5. SALINE [Concomitant]

REACTIONS (9)
  - APHASIA [None]
  - BURNING SENSATION [None]
  - FEAR [None]
  - FEELING ABNORMAL [None]
  - HALLUCINATION, VISUAL [None]
  - HYPOAESTHESIA [None]
  - PANIC REACTION [None]
  - PARAESTHESIA [None]
  - PRURITUS [None]
